FAERS Safety Report 10608142 (Version 1)
Quarter: 2014Q4

REPORT INFORMATION
  Report Type: Spontaneous
  Country: DE (occurrence: DE)
  Receive Date: 20141125
  Receipt Date: 20141125
  Transmission Date: 20150529
  Serious: Yes (Life-Threatening, Hospitalization)
  Sender: FDA-Public Use
  Company Number: GXKR2014DE004264

PATIENT
  Age: 13 Month
  Sex: Male
  Weight: 82 kg

DRUGS (2)
  1. OXCARBAZEPIN ? 1 A PHARMA [Suspect]
     Active Substance: OXCARBAZEPINE
     Indication: PARTIAL SEIZURES
     Dosage: 120 MG, BID
     Route: 048
     Dates: end: 20141024
  2. OXCARBAZEPIN ? 1 A PHARMA [Suspect]
     Active Substance: OXCARBAZEPINE
     Dosage: 150 - 0 - 180 MG
     Route: 048
     Dates: start: 20141025

REACTIONS (2)
  - Status epilepticus [Recovered/Resolved]
  - Drug level decreased [Recovered/Resolved]
